FAERS Safety Report 4448566-X (Version None)
Quarter: 2004Q3

REPORT INFORMATION
  Report Type: 
  Country: None (occurrence: None)
  Receive Date: 20040909
  Receipt Date: 20040825
  Transmission Date: 20050211
  Serious: Yes (Other)
  Sender: FDA-Public Use
  Company Number: 200407751

PATIENT
  Age: 19 Year
  Sex: Female

DRUGS (1)
  1. ZORAC GEL 0.05% [Suspect]
     Indication: PSORIASIS
     Dates: start: 20020901, end: 20021001

REACTIONS (3)
  - ABORTION SPONTANEOUS [None]
  - MATERNAL DRUGS AFFECTING FOETUS [None]
  - PREGNANCY [None]
